FAERS Safety Report 5754429-X (Version None)
Quarter: 2008Q2

REPORT INFORMATION
  Report Type: 
  Country: None (occurrence: None)
  Receive Date: 20080530
  Receipt Date: 20080523
  Transmission Date: 20081010
  Serious: Yes (Other)
  Sender: FDA-Public Use
  Company Number: JP-BRISTOL-MYERS SQUIBB COMPANY-14210686

PATIENT
  Age: 40 Year
  Sex: Female

DRUGS (12)
  1. ABILIFY [Suspect]
     Indication: SCHIZOPHRENIA
     Dosage: 9MG16OCT07-22OCT07;6MG23OCT07-12NOV07,04JAN08-25FEB08;12MG04DEC07-03JAN08;7.5MG26FEB08-07APR08
     Route: 048
     Dates: start: 20071113, end: 20071203
  2. LIPITOR [Concomitant]
     Dates: start: 20070804, end: 20071029
  3. RISPERDAL [Concomitant]
     Dates: start: 20070904, end: 20071203
  4. BROTIZOLAM [Concomitant]
     Dates: start: 20070904
  5. SILECE [Concomitant]
     Dates: start: 20070904
  6. FASTIC [Concomitant]
     Dates: start: 20070904
  7. SENNOSIDE [Concomitant]
     Dates: start: 20070904, end: 20080104
  8. TRIHEXYPHENIDYL HCL [Concomitant]
     Dates: start: 20070904, end: 20071029
  9. SEDIEL [Concomitant]
     Dates: start: 20071005, end: 20071011
  10. AMOBAN [Concomitant]
     Dates: start: 20071011
  11. WYPAX [Concomitant]
     Dates: start: 20071012
  12. CRESTOR [Concomitant]
     Dates: start: 20071029

REACTIONS (3)
  - BLOOD GLUCOSE INCREASED [None]
  - HYPERTRIGLYCERIDAEMIA [None]
  - MUSCULAR WEAKNESS [None]
